FAERS Safety Report 11942750 (Version 1)
Quarter: 2016Q1

REPORT INFORMATION
  Report Type: Spontaneous
  Country: US (occurrence: US)
  Receive Date: 20160125
  Receipt Date: 20160125
  Transmission Date: 20160526
  Serious: No
  Sender: FDA-Public Use
  Company Number: US-UNITED THERAPEUTICS-UNT-2015-009192

PATIENT
  Age: 65 Year
  Sex: Female
  Weight: 64.99 kg

DRUGS (4)
  1. REMODULIN [Suspect]
     Active Substance: TREPROSTINIL
     Indication: PULMONARY ARTERIAL HYPERTENSION
     Dosage: 0.030 ?G/KG/MIN, CONTINUING
     Route: 041
     Dates: start: 20150708
  2. ADCIRCA [Concomitant]
     Active Substance: TADALAFIL
     Indication: PRODUCT USED FOR UNKNOWN INDICATION
  3. REMODULIN [Suspect]
     Active Substance: TREPROSTINIL
     Dosage: 0.022  ?G/KG/MIN, CONTINUING
     Route: 041
  4. REMODULIN [Suspect]
     Active Substance: TREPROSTINIL
     Dosage: 0.034 ?G/KG/MIN, CONTINUING
     Route: 041

REACTIONS (8)
  - Flushing [Unknown]
  - Drug dose omission [Unknown]
  - Dermatitis contact [Unknown]
  - Syncope [Unknown]
  - Accidental overdose [Unknown]
  - Device occlusion [Unknown]
  - Dizziness [Unknown]
  - Injection site haemorrhage [Unknown]

NARRATIVE: CASE EVENT DATE: 201507
